FAERS Safety Report 4645835-5 (Version None)
Quarter: 2005Q2

REPORT INFORMATION
  Report Type: 
  Country: None (occurrence: None)
  Receive Date: 20050422
  Receipt Date: 20050422
  Transmission Date: 20051028
  Serious: Yes (Death)
  Sender: FDA-Public Use
  Company Number: None

PATIENT
  Age: 81 Year
  Sex: Male
  Weight: 79 kg

DRUGS (2)
  1. INTEGRILIN [Suspect]
     Indication: ACUTE CORONARY SYNDROME
     Dosage: 180 MCG KG INTRAVENOUS  ; 13 ML HR INTRAVENOUS
     Route: 042
     Dates: start: 20040926, end: 20040927
  2. INTEGRILIN [Suspect]
     Indication: CATHETERISATION CARDIAC
     Dosage: 180 MCG KG INTRAVENOUS  ; 13 ML HR INTRAVENOUS
     Route: 042
     Dates: start: 20040926, end: 20040927

REACTIONS (7)
  - ACUTE MYOCARDIAL INFARCTION [None]
  - GASTROINTESTINAL DISORDER [None]
  - GASTROINTESTINAL HAEMORRHAGE [None]
  - HYPOTENSION [None]
  - NAUSEA [None]
  - POLYP [None]
  - RESPIRATORY FAILURE [None]
